FAERS Safety Report 8018432-1 (Version None)
Quarter: 2012Q1

REPORT INFORMATION
  Report Type: 
  Country: None (occurrence: None)
  Receive Date: 20120103
  Receipt Date: 20111223
  Transmission Date: 20120608
  Serious: Yes (Hospitalization)
  Sender: FDA-Public Use
  Company Number: FR-NOVOPROD-341999

PATIENT

DRUGS (9)
  1. ISOPTIN [Concomitant]
     Dosage: 360 MG, QD
     Route: 048
  2. SIMVASTATIN [Concomitant]
     Dosage: 20 MG, QD
     Route: 048
  3. INSULATARD NPH HUMAN [Suspect]
     Indication: TYPE 1 DIABETES MELLITUS
     Dosage: 2 U, QD
     Route: 058
     Dates: end: 20110711
  4. LANTUS [Suspect]
     Dosage: 30 U, QD
     Route: 058
  5. HUMALOG [Suspect]
     Dosage: 5U MORNING+ 6U LUNCH + 4U IN THE EVENING
  6. LANTUS [Suspect]
     Dosage: 28 U, QD
  7. HUMALOG [Suspect]
     Dosage: 15 U, QD
     Route: 058
  8. RENITEC                            /00574902/ [Concomitant]
     Dosage: 10 MG, QD
     Route: 048
  9. EUPRESSYL                          /00631801/ [Concomitant]
     Dosage: 60 MG, QD
     Route: 048

REACTIONS (3)
  - VOMITING [None]
  - MALAISE [None]
  - HYPOGLYCAEMIA [None]
